FAERS Safety Report 10465271 (Version 1)
Quarter: 2014Q3

REPORT INFORMATION
  Report Type: Spontaneous
  Country: US (occurrence: US)
  Receive Date: 20140919
  Receipt Date: 20140919
  Transmission Date: 20150326
  Serious: No
  Sender: FDA-Public Use
  Company Number: US-BAUSCH-BL-2013-005269

PATIENT
  Age: 64 Year
  Sex: Male

DRUGS (10)
  1. AVAPRO [Concomitant]
     Active Substance: IRBESARTAN
  2. FISH OIL [Concomitant]
     Active Substance: FISH OIL
  3. TROPICAMIDE OPHTHALMIC SOLUTION USP 1% [Suspect]
     Active Substance: TROPICAMIDE
     Indication: MYDRIASIS
     Dosage: 1 DROP; ONCE; RIGHT EYE
     Route: 047
     Dates: start: 20130913, end: 20130913
  4. MVI [Concomitant]
     Active Substance: VITAMINS
  5. NIASPAN [Concomitant]
     Active Substance: NIACIN
  6. CRESTOR [Concomitant]
     Active Substance: ROSUVASTATIN CALCIUM
  7. FELODIPINEEXTENDED-RELEASE TABLETS [Concomitant]
     Active Substance: FELODIPINE
  8. TROPICAMIDE OPHTHALMIC SOLUTION USP 1% [Suspect]
     Active Substance: TROPICAMIDE
     Dosage: 1 DROP; ONCE; LEFT EYE
     Route: 047
     Dates: start: 20130913, end: 20130913
  9. RANITIDINE [Concomitant]
     Active Substance: RANITIDINE\RANITIDINE HYDROCHLORIDE
  10. FOLIC ACID. [Concomitant]
     Active Substance: FOLIC ACID

REACTIONS (1)
  - Drug effect prolonged [Not Recovered/Not Resolved]

NARRATIVE: CASE EVENT DATE: 20130913
